FAERS Safety Report 24676060 (Version 2)
Quarter: 2025Q1

REPORT INFORMATION
  Report Type: Spontaneous
  Country: DE (occurrence: DE)
  Receive Date: 20241128
  Receipt Date: 20250116
  Transmission Date: 20250409
  Serious: Yes (Other)
  Sender: PFIZER
  Company Number: None

PATIENT
  Age: 85 Year
  Sex: Male

DRUGS (1)
  1. VYNDAQEL [Suspect]
     Active Substance: TAFAMIDIS MEGLUMINE
     Indication: Cardiac amyloidosis
     Route: 048
     Dates: start: 20240715

REACTIONS (6)
  - Blood alkaline phosphatase increased [Not Recovered/Not Resolved]
  - Blood bilirubin increased [Not Recovered/Not Resolved]
  - Hepatic enzyme increased [Not Recovered/Not Resolved]
  - Jaundice [Not Recovered/Not Resolved]
  - Nausea [Unknown]
  - Pruritus [Unknown]

NARRATIVE: CASE EVENT DATE: 20241118
